FAERS Safety Report 15081210 (Version 1)
Quarter: 2018Q2

REPORT INFORMATION
  Report Type: Spontaneous
  Country: US (occurrence: US)
  Receive Date: 20180628
  Receipt Date: 20180628
  Transmission Date: 20180711
  Serious: Yes (Other)
  Sender: FDA-Public Use
  Company Number: US-ACCORD-066303

PATIENT
  Age: 48 Year
  Sex: Male
  Weight: 72.57 kg

DRUGS (1)
  1. CLONAZEPAM ACCORD [Suspect]
     Active Substance: CLONAZEPAM
     Indication: INSOMNIA
     Dosage: STRENGTH: 1 MG, ALSO RECEIVED 0.5 MG
     Route: 048

REACTIONS (4)
  - Off label use [Unknown]
  - Hypersensitivity [Unknown]
  - Drug ineffective [Unknown]
  - Malaise [Unknown]
